FAERS Safety Report 17027844 (Version 1)
Quarter: 2019Q4

REPORT INFORMATION
  Report Type: Spontaneous
  Country: US (occurrence: US)
  Receive Date: 20191113
  Receipt Date: 20191113
  Transmission Date: 20200122
  Serious: Yes (Hospitalization)
  Sender: FDA-Public Use
  Company Number: US-ENDO PHARMACEUTICALS INC-2019-109489

PATIENT
  Age: 48 Year
  Sex: Male

DRUGS (4)
  1. DEXMEDETOMIDINE HYDROCHLORIDE. [Suspect]
     Active Substance: DEXMEDETOMIDINE HYDROCHLORIDE
     Indication: SEDATIVE THERAPY
     Dosage: STARTED ON DAY 4 AFTER SURGERY (UNK DOSAGE)
     Route: 041
  2. FENTANYL. [Concomitant]
     Active Substance: FENTANYL
     Indication: SEDATION
  3. DEXMEDETOMIDINE HYDROCHLORIDE. [Suspect]
     Active Substance: DEXMEDETOMIDINE HYDROCHLORIDE
     Dosage: 1.5?G/KG/HR FOR 48 HOURS FROM POST-OPERATIVE DAY 9
     Route: 041
  4. PROPOFOL. [Concomitant]
     Active Substance: PROPOFOL
     Indication: SEDATION

REACTIONS (1)
  - Hypertensive crisis [Recovered/Resolved]
